FAERS Safety Report 5802356-1 (Version None)
Quarter: 2008Q3

REPORT INFORMATION
  Report Type: 
  Country: None (occurrence: None)
  Receive Date: 20080702
  Receipt Date: 20080627
  Transmission Date: 20090109
  Serious: Yes (Death, Hospitalization)
  Sender: FDA-Public Use
  Company Number: 2008SP012733

PATIENT
  Age: 79 Year
  Sex: Female
  Weight: 52 kg

DRUGS (7)
  1. TEMODAL [Suspect]
     Indication: LYMPHOMA
     Dosage: 225 MG; QD; PO
     Route: 048
     Dates: start: 20080606, end: 20080610
  2. METHOTREXATE [Suspect]
     Indication: LYMPHOMA
     Dosage: 5.45 GM; QD; IV
     Route: 042
     Dates: start: 20080604, end: 20080604
  3. STABLON [Concomitant]
  4. URBANYL [Concomitant]
  5. TAHOR [Concomitant]
  6. KEPPRA [Concomitant]
  7. AMLOR [Concomitant]

REACTIONS (11)
  - CARDIOVASCULAR DISORDER [None]
  - DISTURBANCE IN ATTENTION [None]
  - FAECALOMA [None]
  - GENERAL PHYSICAL HEALTH DETERIORATION [None]
  - INFECTION [None]
  - LIVER DISORDER [None]
  - METABOLIC DISORDER [None]
  - MULTI-ORGAN DISORDER [None]
  - PSEUDOMONAS INFECTION [None]
  - SPLEEN DISORDER [None]
  - UROSEPSIS [None]
